FAERS Safety Report 24273493 (Version 3)
Quarter: 2024Q3

REPORT INFORMATION
  Report Type: Spontaneous
  Country: US (occurrence: US)
  Receive Date: 20240902
  Receipt Date: 20240924
  Transmission Date: 20241016
  Serious: Yes (Other)
  Sender: OTSUKA
  Company Number: US-OTSUKA-2024_023613

PATIENT
  Age: 24 Year
  Sex: Male

DRUGS (2)
  1. ABILIFY [Suspect]
     Active Substance: ARIPIPRAZOLE
     Indication: Bipolar II disorder
     Dosage: 30 MG, QD
     Route: 065
     Dates: start: 2018
  2. METHAMPHETAMINE HYDROCHLORIDE [Suspect]
     Active Substance: METHAMPHETAMINE HYDROCHLORIDE
     Indication: Product used for unknown indication
     Dosage: UNK
     Route: 065
     Dates: end: 202408

REACTIONS (14)
  - Drug dependence [Recovered/Resolved]
  - Mental impairment [Unknown]
  - Tardive dyskinesia [Unknown]
  - Anhedonia [Not Recovered/Not Resolved]
  - Paranoia [Unknown]
  - Emotional distress [Unknown]
  - Apathy [Unknown]
  - Restless legs syndrome [Unknown]
  - Cognitive disorder [Unknown]
  - Agitation [Unknown]
  - Akathisia [Unknown]
  - Sedation [Unknown]
  - Impulse-control disorder [Unknown]
  - Drug ineffective for unapproved indication [Unknown]
